FAERS Safety Report 5532206-2 (Version None)
Quarter: 2007Q4

REPORT INFORMATION
  Report Type: 
  Country: None (occurrence: None)
  Receive Date: 20071203
  Receipt Date: 20071102
  Transmission Date: 20080405
  Serious: Yes (Other)
  Sender: FDA-Public Use
  Company Number: FR-ROCHE-529627

PATIENT
  Sex: Male

DRUGS (7)
  1. RIBAVIRIN [Suspect]
     Route: 065
     Dates: start: 19990901, end: 20000401
  2. INTERFERON ALFA [Suspect]
     Route: 065
     Dates: start: 19990901
  3. STAVUDINE [Concomitant]
     Route: 065
  4. STAVUDINE [Concomitant]
     Route: 065
     Dates: start: 19950901
  5. DIDANOSINE [Concomitant]
  6. DIDANOSINE [Concomitant]
     Dates: start: 19950901
  7. LAMIVUDINE [Concomitant]
     Dates: start: 19950901

REACTIONS (1)
  - MITOCHONDRIAL TOXICITY [None]
